FAERS Safety Report 5694999-3 (Version None)
Quarter: 2008Q2

REPORT INFORMATION
  Report Type: 
  Country: None (occurrence: None)
  Receive Date: 20080404
  Receipt Date: 20080327
  Transmission Date: 20081010
  Serious: Yes (Other)
  Sender: FDA-Public Use
  Company Number: JP-PFIZER INC-2007102424

PATIENT
  Sex: Female

DRUGS (4)
  1. LIPITOR [Suspect]
     Indication: HYPERCHOLESTEROLAEMIA
     Route: 048
     Dates: start: 20060310, end: 20070709
  2. LOXONIN [Concomitant]
     Indication: UPPER RESPIRATORY TRACT INFLAMMATION
     Route: 048
     Dates: start: 20060323, end: 20060325
  3. SELBEX [Concomitant]
     Indication: GASTRITIS
     Route: 048
     Dates: start: 20060323, end: 20060325
  4. ISODINE [Concomitant]
     Indication: UPPER RESPIRATORY TRACT INFLAMMATION
     Dosage: TEXT:AS NEEDED

REACTIONS (1)
  - NEUTROPENIA [None]
